FAERS Safety Report 5763254-5 (Version None)
Quarter: 2008Q2

REPORT INFORMATION
  Report Type: 
  Country: None (occurrence: None)
  Receive Date: 20080604
  Receipt Date: 20080604
  Transmission Date: 20081010
  Serious: No
  Sender: FDA-Public Use
  Company Number: None

PATIENT
  Age: 53 Year
  Sex: Male
  Weight: 95.2554 kg

DRUGS (2)
  1. PACERONE [Suspect]
     Indication: ATRIAL FIBRILLATION
     Dosage: 200MG DAILY PO
     Route: 048
     Dates: start: 20030101, end: 20061101
  2. PACERONE [Suspect]
     Indication: HEART RATE IRREGULAR
     Dosage: 200MG DAILY PO
     Route: 048
     Dates: start: 20030101, end: 20061101

REACTIONS (4)
  - BURNING SENSATION [None]
  - EYE DISORDER [None]
  - PAIN [None]
  - PERIPHERAL SENSORY NEUROPATHY [None]
